FAERS Safety Report 15736796 (Version 2)
Quarter: 2019Q2

REPORT INFORMATION
  Report Type: Report from Study
  Country: BR (occurrence: BR)
  Receive Date: 20181218
  Receipt Date: 20190416
  Transmission Date: 20190711
  Serious: Yes (Hospitalization, Other)
  Sender: FDA-Public Use
  Company Number: PHHY2018BR185923

PATIENT
  Sex: Male
  Weight: 67 kg

DRUGS (4)
  1. EXELON PATCH [Suspect]
     Active Substance: RIVASTIGMINE
     Indication: PROPHYLAXIS
     Dosage: 9.5 MG, QD PATCH 10  (CM2)
     Route: 062
     Dates: start: 2015
  2. EXELON PATCH [Suspect]
     Active Substance: RIVASTIGMINE
     Dosage: 9.5 MG, QD PATCH 10  (CM2)
     Route: 062
  3. EXELON PATCH [Suspect]
     Active Substance: RIVASTIGMINE
     Dosage: 13.3 MG, QD PATCH 15 (CM2)
     Route: 062
  4. EXODUS [Concomitant]
     Indication: DEPRESSION
     Dosage: 15 MG, QD
     Route: 048
     Dates: start: 2015

REACTIONS (12)
  - Feeling abnormal [Recovered/Resolved]
  - Diverticulum [Recovered/Resolved]
  - Diverticulitis [Recovered/Resolved]
  - Weight decreased [Recovering/Resolving]
  - Agitation [Recovered/Resolved]
  - Gastrointestinal disorder [Recovering/Resolving]
  - Product use in unapproved indication [Not Recovered/Not Resolved]
  - General physical health deterioration [Recovered/Resolved]
  - Drug intolerance [Recovered/Resolved]
  - Gastritis [Not Recovered/Not Resolved]
  - Diarrhoea [Recovered/Resolved]
  - Oesophagitis [Not Recovered/Not Resolved]

NARRATIVE: CASE EVENT DATE: 2015
